FAERS Safety Report 7179337 (Version 2)
Quarter: 2013Q2

REPORT INFORMATION
  Report Type: Spontaneous
  Country: DE (occurrence: DE)
  Receive Date: 20091117
  Receipt Date: 20130426
  Transmission Date: 20140414
  Serious: Yes (Other)
  Sender: FDA-Public Use
  Company Number: DE-CELGENEUS-062-21880-09042003

PATIENT
  Sex: 0

DRUGS (6)
  1. REVLIMID [Suspect]
     Indication: PLASMA CELL MYELOMA
     Dosage: 15 MILLIGRAM
     Route: 048
  2. REVLIMID [Suspect]
     Indication: CYTOGENETIC ABNORMALITY
     Dosage: 25 MILLIGRAM
     Route: 048
  3. REVLIMID [Suspect]
     Dosage: 5 MILLIGRAM
     Route: 048
  4. DEXAMETHASONE [Suspect]
     Indication: PLASMA CELL MYELOMA
     Dosage: 40 MILLIGRAM
     Route: 065
  5. CYTARABINE [Suspect]
     Indication: PLASMA CELL MYELOMA
     Route: 065
  6. CISPLATIN [Suspect]
     Indication: PLASMA CELL MYELOMA
     Route: 065

REACTIONS (9)
  - Graft versus host disease [Unknown]
  - Cerebral infarction [Recovered/Resolved]
  - Infection [Unknown]
  - Neutropenia [Unknown]
  - Leukopenia [Unknown]
  - Thrombocytopenia [Unknown]
  - Muscle spasms [Unknown]
  - Fatigue [Unknown]
  - Constipation [Unknown]
